FAERS Safety Report 17742598 (Version 2)
Quarter: 2020Q2

REPORT INFORMATION
  Report Type: Spontaneous
  Country: EG (occurrence: EG)
  Receive Date: 20200504
  Receipt Date: 20200605
  Transmission Date: 20200714
  Serious: Yes (Hospitalization, Other)
  Sender: FDA-Public Use
  Company Number: EG-MALLINCKRODT-T202001974

PATIENT
  Age: 32 Year
  Sex: Male

DRUGS (5)
  1. OFIRMEV [Suspect]
     Active Substance: ACETAMINOPHEN
     Indication: ANTIPYRESIS
  2. OFIRMEV [Suspect]
     Active Substance: ACETAMINOPHEN
     Indication: ANALGESIC THERAPY
     Dosage: 1 GRAM
     Route: 041
     Dates: start: 20191226, end: 20191229
  3. FLAGYL [Concomitant]
     Active Substance: METRONIDAZOLE\METRONIDAZOLE HYDROCHLORIDE
     Indication: PRODUCT USED FOR UNKNOWN INDICATION
     Dosage: UNK
     Route: 065
     Dates: start: 20191226, end: 20191230
  4. ROCEPHIN [Suspect]
     Active Substance: CEFTRIAXONE SODIUM
     Indication: ANTIBIOTIC THERAPY
     Dosage: 1 GRAM
     Route: 042
     Dates: start: 20191226, end: 20191228
  5. ANTODINE [Concomitant]
     Indication: PRODUCT USED FOR UNKNOWN INDICATION
     Dosage: UNK
     Route: 065
     Dates: start: 20191226, end: 20191229

REACTIONS (3)
  - Hyperkalaemia [Unknown]
  - Hepatic enzyme increased [Unknown]
  - International normalised ratio increased [Unknown]

NARRATIVE: CASE EVENT DATE: 20191228
